FAERS Safety Report 14926110 (Version 2)
Quarter: 2018Q4

REPORT INFORMATION
  Report Type: Report from Study
  Country: None (occurrence: BR)
  Receive Date: 20180523
  Receipt Date: 20181226
  Transmission Date: 20190204
  Serious: Yes (Disabling, Other)
  Sender: FDA-Public Use
  Company Number: BR-ABBVIE-18K-020-2361533-00

PATIENT
  Sex: Female
  Weight: 74 kg

DRUGS (13)
  1. HUMIRA [Suspect]
     Active Substance: ADALIMUMAB
     Route: 058
     Dates: start: 2018
  2. FOLIC ACID. [Concomitant]
     Active Substance: FOLIC ACID
     Indication: ANKYLOSING SPONDYLITIS
  3. CLORANA [Concomitant]
     Active Substance: HYDROCHLOROTHIAZIDE
     Indication: HYPERTENSION
  4. CYCLOBENZAPRINE. [Concomitant]
     Active Substance: CYCLOBENZAPRINE
     Indication: FIBROMYALGIA
  5. CITALOPRAM [Concomitant]
     Active Substance: CITALOPRAM HYDROBROMIDE
     Indication: DEPRESSION
  6. LOSARTAN. [Concomitant]
     Active Substance: LOSARTAN
     Indication: HYPERTENSION
  7. HUMIRA [Suspect]
     Active Substance: ADALIMUMAB
     Indication: ANKYLOSING SPONDYLITIS
     Route: 058
     Dates: start: 20170926, end: 2017
  8. XEFO [Concomitant]
     Active Substance: LORNOXICAM
     Indication: ANKYLOSING SPONDYLITIS
  9. CLONAZEPAM. [Concomitant]
     Active Substance: CLONAZEPAM
     Indication: DEPRESSION
  10. METHOTREXATE. [Concomitant]
     Active Substance: METHOTREXATE
     Indication: ANKYLOSING SPONDYLITIS
  11. FERROUS SULFATE. [Concomitant]
     Active Substance: FERROUS SULFATE
     Indication: ANKYLOSING SPONDYLITIS
  12. HUMIRA [Suspect]
     Active Substance: ADALIMUMAB
     Route: 058
     Dates: end: 20180416
  13. PREDNISONE. [Suspect]
     Active Substance: PREDNISONE
     Indication: ANKYLOSING SPONDYLITIS
     Route: 065

REACTIONS (13)
  - Gait inability [Recovered/Resolved]
  - Mobility decreased [Unknown]
  - Swelling [Recovering/Resolving]
  - Pain [Unknown]
  - Cerebral calcification [Not Recovered/Not Resolved]
  - Weight increased [Recovering/Resolving]
  - Bedridden [Unknown]
  - Dry mouth [Unknown]
  - Chronic sinusitis [Recovering/Resolving]
  - Amnesia [Unknown]
  - Somnolence [Unknown]
  - Head discomfort [Unknown]
  - Fear of injection [Unknown]

NARRATIVE: CASE EVENT DATE: 2017
